FAERS Safety Report 18998773 (Version 1)
Quarter: 2021Q1

REPORT INFORMATION
  Report Type: Spontaneous
  Country: US (occurrence: US)
  Receive Date: 20210312
  Receipt Date: 20210312
  Transmission Date: 20210420
  Serious: No
  Sender: FDA-Public Use
  Company Number: NVSC2021US049338

PATIENT
  Age: 45 Year
  Sex: Female

DRUGS (1)
  1. MAYZENT [Suspect]
     Active Substance: SIPONIMOD
     Indication: RELAPSING-REMITTING MULTIPLE SCLEROSIS
     Dosage: 0.25 MG, QD
     Route: 048
     Dates: start: 20210226, end: 20210301

REACTIONS (9)
  - Dizziness [Not Recovered/Not Resolved]
  - Heart rate abnormal [Unknown]
  - Migraine [Recovering/Resolving]
  - Myalgia [Recovering/Resolving]
  - Hot flush [Not Recovered/Not Resolved]
  - Musculoskeletal stiffness [Recovering/Resolving]
  - Erythema [Unknown]
  - Incorrect dose administered [Unknown]
  - Blood pressure abnormal [Unknown]

NARRATIVE: CASE EVENT DATE: 20210226
